FAERS Safety Report 19648331 (Version 1)
Quarter: 2021Q3

REPORT INFORMATION
  Report Type: Report from Study
  Country: US (occurrence: US)
  Receive Date: 20210803
  Receipt Date: 20210803
  Transmission Date: 20211014
  Serious: Yes (Hospitalization)
  Sender: FDA-Public Use
  Company Number: US-BEH-2021134309

PATIENT
  Age: 50 Year
  Sex: Female

DRUGS (1)
  1. HIZENTRA [Suspect]
     Active Substance: HUMAN IMMUNOGLOBULIN G
     Indication: PRIMARY IMMUNODEFICIENCY SYNDROME
     Dosage: 8 GRAM, QW
     Route: 058
     Dates: start: 20210317

REACTIONS (5)
  - Infusion site bruising [Unknown]
  - Pneumonia [Unknown]
  - Liver disorder [Unknown]
  - Scar [Unknown]
  - Spinal operation [Unknown]

NARRATIVE: CASE EVENT DATE: 20210317
